FAERS Safety Report 4732973-1 (Version None)
Quarter: 2005Q3

REPORT INFORMATION
  Report Type: 
  Country: None (occurrence: None)
  Receive Date: 20050802
  Receipt Date: 20050802
  Transmission Date: 20060218
  Serious: Yes (Life-Threatening, Hospitalization)
  Sender: FDA-Public Use
  Company Number: None

PATIENT
  Age: 48 Year
  Sex: Female
  Weight: 81 kg

DRUGS (4)
  1. LOTREL [Suspect]
     Indication: HYPERTENSION
     Dosage: ~ 1 YR
  2. LOTREL [Concomitant]
  3. HYDROCODONE BITARTRATE + ACETAMINOPHEN [Concomitant]
  4. BIRTH CONTROL PILL [Concomitant]

REACTIONS (3)
  - GLOSSODYNIA [None]
  - SWELLING [None]
  - SWOLLEN TONGUE [None]
